FAERS Safety Report 23579336 (Version 1)
Quarter: 2024Q1

REPORT INFORMATION
  Report Type: Spontaneous
  Country: US (occurrence: US)
  Receive Date: 20240229
  Receipt Date: 20240229
  Transmission Date: 20240409
  Serious: No
  Sender: FDA-Public Use
  Company Number: US-ELI_LILLY_AND_COMPANY-US202402016843

PATIENT
  Age: 77 Year
  Sex: Male

DRUGS (16)
  1. MOUNJARO [Suspect]
     Active Substance: TIRZEPATIDE
     Indication: Type 2 diabetes mellitus
     Dosage: 15 MG, UNKNOWN
     Route: 065
  2. MOUNJARO [Suspect]
     Active Substance: TIRZEPATIDE
     Indication: Type 2 diabetes mellitus
     Dosage: 15 MG, UNKNOWN
     Route: 065
  3. MOUNJARO [Suspect]
     Active Substance: TIRZEPATIDE
     Indication: Type 2 diabetes mellitus
     Dosage: 15 MG, UNKNOWN
     Route: 065
  4. MOUNJARO [Suspect]
     Active Substance: TIRZEPATIDE
     Indication: Type 2 diabetes mellitus
     Dosage: 15 MG, UNKNOWN
     Route: 065
  5. BYSTOLIC [Concomitant]
     Active Substance: NEBIVOLOL HYDROCHLORIDE
     Indication: Hypertension
     Dosage: 20 MG, DAILY
  6. LEVOTHYROXINE [Concomitant]
     Active Substance: LEVOTHYROXINE\LEVOTHYROXINE SODIUM
     Indication: Thyroid disorder
     Dosage: 075 MG, DAILY
  7. JARDIANCE [Concomitant]
     Active Substance: EMPAGLIFLOZIN
     Indication: Product used for unknown indication
     Dosage: 25 MG, DAILY
  8. CARISOPRODOL [Concomitant]
     Active Substance: CARISOPRODOL
     Indication: Inflammation
     Dosage: 350 MG, DAILY
  9. GABAPENTIN [Concomitant]
     Active Substance: GABAPENTIN
     Indication: Neuralgia
     Dosage: 800 MG, TID
  10. LEXAPRO [Concomitant]
     Active Substance: ESCITALOPRAM OXALATE
     Indication: Anxiety
     Dosage: 10 MG, BID
  11. NIFEDIPINE [Concomitant]
     Active Substance: NIFEDIPINE
     Indication: Blood pressure abnormal
     Dosage: 60 MG, BID
  12. LOSARTAN [Concomitant]
     Active Substance: LOSARTAN
     Indication: Hypertension
     Dosage: 100 MG, DAILY
  13. ELIQUIS [Concomitant]
     Active Substance: APIXABAN
     Indication: Anticoagulant therapy
     Dosage: 5 MG, BID
  14. REPATHA [Concomitant]
     Active Substance: EVOLOCUMAB
     Indication: Product used for unknown indication
     Dosage: 140 UNK, OTHER (BIWEEKLY)
  15. TAMSULOSIN [Concomitant]
     Active Substance: TAMSULOSIN
     Indication: Benign prostatic hyperplasia
     Dosage: 0.4 MG, DAILY
  16. HYDROCODONE [Concomitant]
     Active Substance: HYDROCODONE
     Indication: Product used for unknown indication
     Dosage: 25 MG, QID

REACTIONS (1)
  - Dizziness [Unknown]
